FAERS Safety Report 9115353 (Version 1)
Quarter: 2013Q1

REPORT INFORMATION
  Report Type: Spontaneous
  Country: US (occurrence: None)
  Receive Date: 20130128
  Receipt Date: 20130128
  Transmission Date: 20140127
  Serious: Yes (Other)
  Sender: FDA-Public Use
  Company Number: 2013SA002979

PATIENT
  Age: 55 Year
  Sex: Female

DRUGS (1)
  1. ASPERCREME HEAT RELIEVING GEL [Suspect]
     Indication: ANALGESIC THERAPY
     Route: 061
     Dates: start: 20130101

REACTIONS (3)
  - Blister [None]
  - Pruritus [None]
  - Rash [None]
